FAERS Safety Report 24396285 (Version 1)
Quarter: 2024Q4

REPORT INFORMATION
  Report Type: Spontaneous
  Country: CA (occurrence: CA)
  Receive Date: 20241004
  Receipt Date: 20241004
  Transmission Date: 20250114
  Serious: Yes (Hospitalization)
  Sender: PFIZER
  Company Number: CA-PFIZER INC-202400267811

PATIENT
  Age: 45 Year
  Sex: Female
  Weight: 44 kg

DRUGS (20)
  1. HEPARIN SODIUM [Suspect]
     Active Substance: HEPARIN SODIUM
     Indication: Aneurysm repair
     Dosage: 6000 IU, SINGLE
     Route: 042
  2. ASPIRIN [Suspect]
     Active Substance: ASPIRIN
     Indication: Aneurysm repair
     Dosage: 80 MG, 1X/DAY
     Route: 048
  3. ENOXAPARIN SODIUM [Suspect]
     Active Substance: ENOXAPARIN SODIUM
     Indication: Thrombosis prophylaxis
     Dosage: 40 MG, 1X/DAY
     Route: 058
  4. ACETAMINOPHEN [Concomitant]
     Active Substance: ACETAMINOPHEN
  5. CALCIUM CHLORIDE [Concomitant]
     Active Substance: CALCIUM CHLORIDE
  6. DEXILANT [Concomitant]
     Active Substance: DEXLANSOPRAZOLE
  7. FENTANYL [Concomitant]
     Active Substance: FENTANYL
  8. HYDRALAZINE [Concomitant]
     Active Substance: HYDRALAZINE HYDROCHLORIDE
  9. INSULIN BEEF [Concomitant]
     Active Substance: INSULIN BEEF
  10. LEVOTHYROXINE SODIUM [Concomitant]
     Active Substance: LEVOTHYROXINE SODIUM
     Route: 065
  11. MAGNESIUM OXIDE [Concomitant]
     Active Substance: MAGNESIUM OXIDE
  12. MILRINONE [Concomitant]
     Active Substance: MILRINONE
  13. NIMODIPINE [Concomitant]
     Active Substance: NIMODIPINE
  14. NOREPINEPHRINE [Concomitant]
     Active Substance: NOREPINEPHRINE\NOREPINEPHRINE BITARTRATE
  15. ONDANSETRON [Concomitant]
     Active Substance: ONDANSETRON
  16. PHOSPHORUS [Concomitant]
     Active Substance: PHOSPHORUS
  17. PIPERACILLIN SODIUM\TAZOBACTAM SODIUM [Concomitant]
     Active Substance: PIPERACILLIN SODIUM\TAZOBACTAM SODIUM
  18. POTASSIUM [Concomitant]
     Active Substance: POTASSIUM
  19. ALBUTEROL [Concomitant]
     Active Substance: ALBUTEROL
  20. THIAMINE HYDROCHLORIDE [Concomitant]
     Active Substance: THIAMINE HYDROCHLORIDE

REACTIONS (2)
  - Haemoglobin decreased [Recovered/Resolved]
  - Muscle haemorrhage [Recovered/Resolved]
